FAERS Safety Report 12699370 (Version 1)
Quarter: 2016Q3

REPORT INFORMATION
  Report Type: Spontaneous
  Country: CN (occurrence: CN)
  Receive Date: 20160830
  Receipt Date: 20160830
  Transmission Date: 20161109
  Serious: Yes (Other)
  Sender: FDA-Public Use
  Company Number: CN-PFIZER INC-2016399342

PATIENT
  Age: 70 Year
  Sex: Male

DRUGS (1)
  1. TIGECYCLINE. [Suspect]
     Active Substance: TIGECYCLINE
     Dosage: 50 MG, 2X/DAY
     Route: 041
     Dates: start: 20160310, end: 20160318

REACTIONS (2)
  - Coagulation time prolonged [Recovering/Resolving]
  - Platelet count decreased [Recovering/Resolving]

NARRATIVE: CASE EVENT DATE: 20160314
